FAERS Safety Report 25251965 (Version 2)
Quarter: 2025Q2

REPORT INFORMATION
  Report Type: Spontaneous
  Country: CN (occurrence: CN)
  Receive Date: 20250429
  Receipt Date: 20250529
  Transmission Date: 20250716
  Serious: No
  Sender: JOHNSON AND JOHNSON
  Company Number: CN-JNJFOC-20250416530

PATIENT
  Sex: Female
  Weight: 49.5 kg

DRUGS (1)
  1. GUSELKUMAB [Suspect]
     Active Substance: GUSELKUMAB
     Indication: Psoriasis
     Route: 065

REACTIONS (3)
  - Accidental exposure to product [Unknown]
  - Product dose omission issue [Unknown]
  - Device deployment issue [Unknown]
